FAERS Safety Report 21596016 (Version 1)
Quarter: 2022Q4

REPORT INFORMATION
  Report Type: Spontaneous
  Country: CA (occurrence: CA)
  Receive Date: 20221115
  Receipt Date: 20221115
  Transmission Date: 20230113
  Serious: Yes (Other)
  Sender: FDA-Public Use
  Company Number: None

PATIENT
  Age: 66 Year
  Sex: Female

DRUGS (1)
  1. FULVESTRANT [Suspect]
     Active Substance: FULVESTRANT
     Indication: Breast cancer metastatic
     Dosage: 1 EVERY 1 MONTHS
     Route: 065

REACTIONS (5)
  - Chills [Recovered/Resolved]
  - Dizziness [Recovered/Resolved]
  - Fall [Unknown]
  - Feeling cold [Recovered/Resolved]
  - Hypertensive crisis [Recovered/Resolved]
